FAERS Safety Report 4408319-5 (Version None)
Quarter: 2004Q3

REPORT INFORMATION
  Report Type: 
  Country: None (occurrence: None)
  Receive Date: 20040722
  Receipt Date: 20040629
  Transmission Date: 20050211
  Serious: Yes (Hospitalization)
  Sender: FDA-Public Use
  Company Number: MK200407-0109-1

PATIENT
  Age: 49 Year
  Sex: Female

DRUGS (2)
  1. TECHNESCAN MAA [Suspect]
     Indication: SCINTIGRAPHY
     Dosage: UNKNOWN, SINGLE USE
     Route: 065
     Dates: start: 20030613, end: 20030613
  2. VISIPAQUE [Concomitant]

REACTIONS (4)
  - ERYTHEMA [None]
  - PRURITUS [None]
  - RASH [None]
  - SKIN REACTION [None]
